FAERS Safety Report 4536963-3 (Version None)
Quarter: 2004Q4

REPORT INFORMATION
  Report Type: 
  Country: None (occurrence: None)
  Receive Date: 20041220
  Receipt Date: 20041206
  Transmission Date: 20050328
  Serious: Yes (Death, Hospitalization)
  Sender: FDA-Public Use
  Company Number: S04-YUG-07887-01

PATIENT
  Age: 83 Year
  Sex: Female

DRUGS (2)
  1. MEMANTINE [Suspect]
     Indication: DEMENTIA ALZHEIMER'S TYPE
     Dosage: 5 MG QD PO
     Route: 048
     Dates: start: 20040423, end: 20040401
  2. CLOZAPINE [Concomitant]

REACTIONS (1)
  - CEREBRAL HAEMORRHAGE [None]
